FAERS Safety Report 4805392-7 (Version None)
Quarter: 2005Q4

REPORT INFORMATION
  Report Type: 
  Country: None (occurrence: None)
  Receive Date: 20051017
  Receipt Date: 20051007
  Transmission Date: 20060501
  Serious: No
  Sender: FDA-Public Use
  Company Number: 2005US-00878

PATIENT
  Age: 42 Year
  Sex: Male

DRUGS (1)
  1. GANCICLOVIR SODIUM [Suspect]
     Indication: ANTIVIRAL PROPHYLAXIS
     Dosage: 1 G, TID

REACTIONS (2)
  - BONE MARROW FAILURE [None]
  - NEUTROPHIL MORPHOLOGY ABNORMAL [None]
